FAERS Safety Report 10409822 (Version 1)
Quarter: 2014Q3

REPORT INFORMATION
  Report Type: Spontaneous
  Country: US (occurrence: None)
  Receive Date: 20140703
  Receipt Date: 20140703
  Transmission Date: 20150326
  Serious: Yes (Other)
  Sender: FDA-Public Use
  Company Number: AUR-APL-2014-06105

PATIENT
  Age: 55 Year
  Sex: Male

DRUGS (1)
  1. LAMOTRIGINE (LAMOTRIGINE) UNKNOWN [Suspect]
     Active Substance: LAMOTRIGINE
     Indication: MAJOR DEPRESSION

REACTIONS (5)
  - Jaw disorder [None]
  - Drug ineffective [None]
  - Muscle twitching [None]
  - Tardive dyskinesia [None]
  - Mania [None]
